FAERS Safety Report 6702742-1 (Version None)
Quarter: 2010Q2

REPORT INFORMATION
  Report Type: 
  Country: None (occurrence: None)
  Receive Date: 20100428
  Receipt Date: 20100413
  Transmission Date: 20101027
  Serious: Yes (Hospitalization, Other)
  Sender: FDA-Public Use
  Company Number: 2009003565

PATIENT
  Age: 47 Year
  Sex: Male
  Weight: 87 kg

DRUGS (12)
  1. ERLOTINIB HYDROCHLORIDE [Suspect]
     Indication: LUNG ADENOCARCINOMA
     Dosage: 150 MG, QD, ORAL
     Route: 048
     Dates: start: 20090203, end: 20090423
  2. OPSO [Concomitant]
  3. PHENYTOIN [Concomitant]
  4. KADIAN [Concomitant]
  5. MAGNESIUM OXIDE (MAGNESIUM OXIDE) [Concomitant]
  6. LOXOPROFEN (LOXOPROFEN) [Concomitant]
  7. MUCOSTA (REBAMIPIDE) [Concomitant]
  8. OMEPRAZOLE [Concomitant]
  9. FENTANYL-100 [Concomitant]
  10. CLONAZEPAM [Concomitant]
  11. NAIXAN (NAPROXEN SODIUM) [Concomitant]
  12. ZONISAMIDE [Concomitant]

REACTIONS (2)
  - DEPRESSED LEVEL OF CONSCIOUSNESS [None]
  - HYPONATRAEMIA [None]
